FAERS Safety Report 22168701 (Version 2)
Quarter: 2023Q2

REPORT INFORMATION
  Report Type: Spontaneous
  Country: DE (occurrence: DE)
  Receive Date: 20230403
  Receipt Date: 20230407
  Transmission Date: 20230721
  Serious: Yes (Death, Other)
  Sender: FDA-Public Use
  Company Number: DE-STADA-162797

PATIENT
  Age: 19 Year
  Sex: Male

DRUGS (5)
  1. GEMCITABINE HYDROCHLORIDE [Suspect]
     Active Substance: GEMCITABINE HYDROCHLORIDE
     Indication: Synovial sarcoma
     Dosage: 800 MG/M2, UNKNOWN
     Route: 042
  2. ETOPOSIDE [Suspect]
     Active Substance: ETOPOSIDE
     Indication: Synovial sarcoma
     Dosage: 1 DF: 2 X 25 MG/M2
     Route: 048
  3. ETOPOSIDE [Suspect]
     Active Substance: ETOPOSIDE
     Dosage: 1 DF: 2 X 25 MG/M2
     Route: 048
  4. PONATINIB [Suspect]
     Active Substance: PONATINIB
     Indication: Synovial sarcoma
     Dosage: 30 MG, UNKNOWN
     Route: 048
  5. GEFITINIB [Suspect]
     Active Substance: GEFITINIB
     Indication: Synovial sarcoma
     Dosage: 250 MG, UNKNOWN
     Route: 048

REACTIONS (10)
  - Death [Fatal]
  - Pericardial effusion [Unknown]
  - Lymphopenia [Unknown]
  - Neutropenia [Unknown]
  - Anaemia [Unknown]
  - Thrombocytopenia [Unknown]
  - Malignant neoplasm progression [Unknown]
  - Pleural effusion [Unknown]
  - Cough [Unknown]
  - Off label use [Unknown]
